FAERS Safety Report 15057866 (Version 1)
Quarter: 2018Q2

REPORT INFORMATION
  Report Type: Spontaneous
  Country: GP (occurrence: FR)
  Receive Date: 20180625
  Receipt Date: 20180625
  Transmission Date: 20180711
  Serious: Yes (Other)
  Sender: FDA-Public Use
  Company Number: GP-BRISTOL-MYERS SQUIBB COMPANY-BMS-2018-052113

PATIENT
  Age: 49 Year
  Sex: Female

DRUGS (1)
  1. SUSTIVA [Suspect]
     Active Substance: EFAVIRENZ
     Indication: HIV INFECTION
     Dosage: 600 MG, UNK
     Route: 048
     Dates: start: 19990820

REACTIONS (5)
  - Attention deficit/hyperactivity disorder [Unknown]
  - Intracranial pressure increased [Unknown]
  - Headache [Recovered/Resolved]
  - Vertigo [Unknown]
  - Hypertension [Unknown]

NARRATIVE: CASE EVENT DATE: 20180530
